FAERS Safety Report 18612734 (Version 1)
Quarter: 2020Q4

REPORT INFORMATION
  Report Type: Spontaneous
  Country: IT (occurrence: IT)
  Receive Date: 20201214
  Receipt Date: 20201214
  Transmission Date: 20210114
  Serious: Yes (Hospitalization)
  Sender: FDA-Public Use
  Company Number: IT-MYLANLABS-2020M1101302

PATIENT
  Age: 16 Year
  Sex: Female
  Weight: 52 kg

DRUGS (1)
  1. PREGABALIN. [Suspect]
     Active Substance: PREGABALIN
     Indication: PRODUCT USED FOR UNKNOWN INDICATION
     Dosage: 225 MILLIGRAM, TOTAL
     Route: 048
     Dates: start: 20201112, end: 20201112

REACTIONS (5)
  - Vomiting [Recovered/Resolved]
  - Vertigo [Recovered/Resolved]
  - Medication error [Recovered/Resolved]
  - Asthenia [Recovered/Resolved]
  - Nausea [Recovered/Resolved]

NARRATIVE: CASE EVENT DATE: 20201112
